FAERS Safety Report 18689769 (Version 3)
Quarter: 2021Q1

REPORT INFORMATION
  Report Type: Spontaneous
  Country: PL (occurrence: PL)
  Receive Date: 20201231
  Receipt Date: 20210303
  Transmission Date: 20210419
  Serious: Yes (Hospitalization, Other)
  Sender: FDA-Public Use
  Company Number: PL-009507513-2012POL012944

PATIENT
  Age: 34 Year
  Sex: Female

DRUGS (4)
  1. VALCYTE [Concomitant]
     Active Substance: VALGANCICLOVIR HYDROCHLORIDE
     Route: 048
  2. CYCLOSPORINE. [Concomitant]
     Active Substance: CYCLOSPORINE
  3. PREVYMIS [Suspect]
     Active Substance: LETERMOVIR
     Indication: PROPHYLAXIS
     Dosage: 240 MG PER DAY
     Route: 048
     Dates: start: 20201003
  4. PREVYMIS [Suspect]
     Active Substance: LETERMOVIR
     Dosage: UNK
     Route: 048
     Dates: start: 20210107, end: 20210209

REACTIONS (4)
  - False positive investigation result [Unknown]
  - Pancytopenia [Unknown]
  - Cytomegalovirus infection reactivation [Unknown]
  - Renal failure [Unknown]
